FAERS Safety Report 7186796-7 (Version None)
Quarter: 2010Q4

REPORT INFORMATION
  Report Type: 
  Country: None (occurrence: None)
  Receive Date: 20101222
  Receipt Date: 20101217
  Transmission Date: 20110411
  Serious: Yes (Hospitalization)
  Sender: FDA-Public Use
  Company Number: A0898148A

PATIENT
  Age: 73 Year
  Sex: Female
  Weight: 67.7 kg

DRUGS (6)
  1. MELPHALAN [Suspect]
     Indication: MULTIPLE MYELOMA
     Dosage: 336MG SINGLE DOSE
     Route: 042
     Dates: start: 20101025, end: 20101025
  2. ALBUTEROL [Concomitant]
     Indication: WHEEZING
     Dosage: 90MCG UNKNOWN
     Route: 055
  3. AMBIEN [Concomitant]
     Indication: INSOMNIA
     Route: 048
  4. SYNTHROID [Concomitant]
     Indication: HYPOTHYROIDISM
     Dosage: 75MCG UNKNOWN
  5. TRIAMTERENE AND HYDROCHLOROTHIAZIDE [Concomitant]
     Indication: HYPERTENSION
  6. LISINOPRIL [Concomitant]
     Indication: HYPERTENSION

REACTIONS (8)
  - BACK PAIN [None]
  - DEHYDRATION [None]
  - FEBRILE NEUTROPENIA [None]
  - MUCOSAL INFLAMMATION [None]
  - NAUSEA [None]
  - PYREXIA [None]
  - SPINAL COMPRESSION FRACTURE [None]
  - VOMITING [None]
